FAERS Safety Report 4452309-3 (Version None)
Quarter: 2004Q3

REPORT INFORMATION
  Report Type: 
  Country: None (occurrence: None)
  Receive Date: 20040917
  Receipt Date: 20040908
  Transmission Date: 20050211
  Serious: Yes (Other)
  Sender: FDA-Public Use
  Company Number: US-ROCHE-380248

PATIENT
  Age: 41 Year
  Sex: Male

DRUGS (2)
  1. PEGASYS [Suspect]
     Indication: DRUG USE FOR UNKNOWN INDICATION
     Route: 065
     Dates: start: 20040225, end: 20040906
  2. COPEGUS [Suspect]
     Indication: DRUG USE FOR UNKNOWN INDICATION
     Route: 065
     Dates: start: 20040225, end: 20040906

REACTIONS (3)
  - ARTHRALGIA [None]
  - DIFFICULTY IN WALKING [None]
  - HAEMORRHAGE [None]
